FAERS Safety Report 21795762 (Version 1)
Quarter: 2022Q4

REPORT INFORMATION
  Report Type: Spontaneous
  Country: HR (occurrence: HR)
  Receive Date: 20221229
  Receipt Date: 20221229
  Transmission Date: 20230113
  Serious: Yes (Other)
  Sender: FDA-Public Use
  Company Number: HR-009507513-2212HRV007460

PATIENT
  Age: 67 Year
  Sex: Female

DRUGS (3)
  1. PEMETREXED [Suspect]
     Active Substance: PEMETREXED
     Indication: Product used for unknown indication
     Route: 065
  2. CARBOPLATIN [Suspect]
     Active Substance: CARBOPLATIN
     Indication: Product used for unknown indication
     Route: 065
  3. KEYTRUDA [Suspect]
     Active Substance: PEMBROLIZUMAB
     Indication: Product used for unknown indication
     Route: 065

REACTIONS (12)
  - Hepatitis [None]
  - Brain operation [None]
  - Speech disorder [None]
  - Bilirubin conjugated abnormal [None]
  - Aphasia [None]
  - Blood bilirubin abnormal [None]
  - Gamma-glutamyltransferase abnormal [None]
  - Jaundice [None]
  - Nausea [None]
  - Blood alkaline phosphatase abnormal [None]
  - Alanine aminotransferase abnormal [None]
  - Aspartate aminotransferase abnormal [None]

NARRATIVE: CASE EVENT DATE: 20221206
